FAERS Safety Report 9344283 (Version 1)
Quarter: 2013Q2

REPORT INFORMATION
  Report Type: Spontaneous
  Country: US (occurrence: US)
  Receive Date: 20130612
  Receipt Date: 20130612
  Transmission Date: 20140414
  Serious: No
  Sender: FDA-Public Use
  Company Number: US-PFIZER INC-2013173949

PATIENT
  Sex: Female

DRUGS (2)
  1. ZITHROMAX [Suspect]
     Indication: EAR PAIN
     Dosage: UNK
  2. ZITHROMAX [Suspect]
     Indication: EAR INFECTION

REACTIONS (1)
  - Drug ineffective [Unknown]
